FAERS Safety Report 8179575-5 (Version None)
Quarter: 2012Q1

REPORT INFORMATION
  Report Type: 
  Country: None (occurrence: None)
  Receive Date: 20120229
  Receipt Date: 20120210
  Transmission Date: 20120608
  Serious: No
  Sender: FDA-Public Use
  Company Number: 2012SP009561

PATIENT
  Age: 20 Year
  Sex: Male

DRUGS (3)
  1. ZOLOFT [Concomitant]
  2. HALDOL [Concomitant]
  3. SAPHRIS [Suspect]
     Indication: PRODUCT USED FOR UNKNOWN INDICATION
     Dosage: SL
     Route: 060

REACTIONS (2)
  - RESPIRATORY ARREST [None]
  - PRURITUS GENERALISED [None]
